FAERS Safety Report 18473203 (Version 1)
Quarter: 2020Q4

REPORT INFORMATION
  Report Type: Other
  Country: CA (occurrence: CA)
  Receive Date: 20201106
  Receipt Date: 20201106
  Transmission Date: 20210114
  Serious: Yes (Hospitalization)
  Sender: FDA-Public Use
  Company Number: CA-APOTEX-2020AP020912

PATIENT
  Age: 75 Year
  Sex: Female

DRUGS (1)
  1. APO-DULOXETINE [Suspect]
     Active Substance: DULOXETINE
     Indication: PAIN
     Dosage: 60 MILLIGRAM, QD
     Route: 048

REACTIONS (3)
  - Cognitive disorder [Unknown]
  - Anxiety [Unknown]
  - Hospitalisation [Unknown]
